FAERS Safety Report 4767356-1 (Version None)
Quarter: 2005Q3

REPORT INFORMATION
  Report Type: 
  Country: None (occurrence: None)
  Receive Date: 20050913
  Receipt Date: 20050902
  Transmission Date: 20060218
  Serious: Yes (Other)
  Sender: FDA-Public Use
  Company Number: GB-ROCHE-416645

PATIENT
  Age: 44 Year
  Sex: Male

DRUGS (5)
  1. PEGASYS [Suspect]
     Route: 058
     Dates: start: 20050211, end: 20050729
  2. COPEGUS [Suspect]
     Route: 048
     Dates: start: 20050211, end: 20050729
  3. RANITIDINE [Concomitant]
     Route: 048
  4. UNSPECIFIED MEDICATION [Concomitant]
     Indication: DEPRESSION
     Dosage: DRUG NAME REPORTED AS OXACTIN.
     Route: 048
  5. DICLOFENAC [Concomitant]
     Indication: BACK PAIN
     Route: 048

REACTIONS (7)
  - CYST [None]
  - DYSPNOEA [None]
  - ERYTHEMA [None]
  - RASH [None]
  - SARCOIDOSIS [None]
  - SKIN BURNING SENSATION [None]
  - SKIN LESION [None]
